FAERS Safety Report 6967561-X (Version None)
Quarter: 2010Q3

REPORT INFORMATION
  Report Type: 
  Country: None (occurrence: None)
  Receive Date: 20100823
  Receipt Date: 20100602
  Transmission Date: 20110219
  Serious: No
  Sender: FDA-Public Use
  Company Number: 014160

PATIENT
  Sex: Female

DRUGS (1)
  1. CIMZIA [Suspect]
     Dates: start: 20100501

REACTIONS (3)
  - ABDOMINAL PAIN [None]
  - FATIGUE [None]
  - FREQUENT BOWEL MOVEMENTS [None]
